FAERS Safety Report 7371210-9 (Version None)
Quarter: 2011Q1

REPORT INFORMATION
  Report Type: 
  Country: None (occurrence: None)
  Receive Date: 20110321
  Receipt Date: 20110321
  Transmission Date: 20110831
  Serious: Yes (Other)
  Sender: FDA-Public Use
  Company Number: None

PATIENT
  Age: 53 Year
  Sex: Female
  Weight: 62.5964 kg

DRUGS (5)
  1. TOPROL-XL [Concomitant]
  2. CHLONAPIN [Concomitant]
  3. AVELOX [Suspect]
     Indication: PHARYNGITIS
     Dosage: 400MG 1 PO
     Route: 048
     Dates: start: 20110317, end: 20110317
  4. AVELOX [Suspect]
     Indication: SINUSITIS
     Dosage: 400MG 1 PO
     Route: 048
     Dates: start: 20110317, end: 20110317
  5. EFFEXOR [Concomitant]

REACTIONS (5)
  - EAR DISCOMFORT [None]
  - URTICARIA [None]
  - EAR PRURITUS [None]
  - PRURITUS [None]
  - ERYTHEMA [None]
